FAERS Safety Report 6240594-7 (Version None)
Quarter: 2009Q2

REPORT INFORMATION
  Report Type: 
  Country: None (occurrence: None)
  Receive Date: 20090623
  Receipt Date: 20081020
  Transmission Date: 20091009
  Serious: No
  Sender: FDA-Public Use
  Company Number: US-ASTRAZENECA-2008UW23251

PATIENT
  Age: 7 Year
  Sex: Female

DRUGS (5)
  1. PULMICORT RESPULES [Suspect]
     Indication: ASTHMA
     Dosage: 0.25 MG ONCE DAILY
     Route: 055
     Dates: start: 20060601
  2. PULMICORT RESPULES [Suspect]
     Dosage: 0.25 MG, TWICE DAILY
     Route: 055
     Dates: start: 20080601
  3. ALBUTEROL [Concomitant]
  4. XOPINEX [Concomitant]
  5. SINGULAIR [Concomitant]
     Dosage: DAILY

REACTIONS (3)
  - COUGH [None]
  - DRUG INEFFECTIVE [None]
  - WHEEZING [None]
